FAERS Safety Report 6985073-4 (Version None)
Quarter: 2010Q3

REPORT INFORMATION
  Report Type: 
  Country: None (occurrence: None)
  Receive Date: 20100915
  Receipt Date: 20100907
  Transmission Date: 20110219
  Serious: Yes (Other)
  Sender: FDA-Public Use
  Company Number: PHHY2010US55826

PATIENT
  Age: 53 Year
  Sex: Female

DRUGS (2)
  1. TOBI [Suspect]
     Indication: CYSTIC FIBROSIS
     Dosage: 300 MG, BID
     Dates: start: 20090714
  2. TOBI [Suspect]
     Indication: PSEUDOMONAS INFECTION

REACTIONS (2)
  - RESPIRATORY TRACT INFECTION [None]
  - STAPHYLOCOCCAL INFECTION [None]
